FAERS Safety Report 8347970-7 (Version None)
Quarter: 2012Q2

REPORT INFORMATION
  Report Type: 
  Country: None (occurrence: None)
  Receive Date: 20120509
  Receipt Date: 20120501
  Transmission Date: 20120825
  Serious: Yes (Hospitalization)
  Sender: FDA-Public Use
  Company Number: US-ELI_LILLY_AND_COMPANY-US201205000705

PATIENT
  Sex: Female

DRUGS (1)
  1. EFFIENT [Suspect]
     Dosage: 60 MG, LOADING DOSE

REACTIONS (2)
  - CORONARY ARTERY BYPASS [None]
  - HAEMORRHAGE [None]
